FAERS Safety Report 7010181-1 (Version None)
Quarter: 2010Q3

REPORT INFORMATION
  Report Type: 
  Country: None (occurrence: None)
  Receive Date: 20100923
  Receipt Date: 20090908
  Transmission Date: 20110219
  Serious: No
  Sender: FDA-Public Use
  Company Number: US-BAUSCH-2009BL004635

PATIENT
  Age: 73 Year
  Sex: Male
  Weight: 65 kg

DRUGS (2)
  1. PREDNISOLONE SODIUM PHOSPHATE [Suspect]
     Indication: BLEPHARITIS
     Route: 047
     Dates: start: 20090727, end: 20090908
  2. NADOLOL [Concomitant]
     Indication: MITRAL VALVE PROLAPSE
     Route: 048

REACTIONS (1)
  - INSTILLATION SITE PAIN [None]
